FAERS Safety Report 24164036 (Version 1)
Quarter: 2024Q3

REPORT INFORMATION
  Report Type: Spontaneous
  Country: JP (occurrence: JP)
  Receive Date: 20240801
  Receipt Date: 20240801
  Transmission Date: 20241016
  Serious: Yes (Congenital Anomaly, Other)
  Sender: GUERBET
  Company Number: JP-GUERBETG_JAPAN-JP-20240101

PATIENT
  Sex: Female
  Weight: 3.236 kg

DRUGS (1)
  1. LIPIODOL [Suspect]
     Active Substance: ETHIODIZED OIL
     Indication: Hysterosalpingogram
     Route: 064

REACTIONS (3)
  - Transient tachypnoea of the newborn [Recovered/Resolved]
  - Goitre congenital [Recovered/Resolved]
  - Thyroxine free increased [Recovered/Resolved]
